FAERS Safety Report 18775293 (Version 1)
Quarter: 2021Q1

REPORT INFORMATION
  Report Type: Spontaneous
  Country: DE (occurrence: DE)
  Receive Date: 20210122
  Receipt Date: 20210122
  Transmission Date: 20210419
  Serious: Yes (Hospitalization, Other)
  Sender: FDA-Public Use
  Company Number: NVSC2020DE273755

PATIENT
  Sex: Female

DRUGS (1)
  1. BEOVU [Suspect]
     Active Substance: BROLUCIZUMAB-DBLL
     Indication: NEOVASCULAR AGE-RELATED MACULAR DEGENERATION
     Dosage: 6 MG
     Route: 031
     Dates: start: 20200901, end: 20200901

REACTIONS (8)
  - Eye inflammation [Unknown]
  - Visual acuity reduced [Unknown]
  - Anterior chamber inflammation [Unknown]
  - Retinal vascular occlusion [Recovered/Resolved with Sequelae]
  - Retinal vasculitis [Recovered/Resolved with Sequelae]
  - Visual field defect [Recovered/Resolved with Sequelae]
  - Iritis [Unknown]
  - Iris disorder [Recovered/Resolved]

NARRATIVE: CASE EVENT DATE: 20200921
